FAERS Safety Report 7519882-X (Version None)
Quarter: 2011Q2

REPORT INFORMATION
  Report Type: 
  Country: None (occurrence: None)
  Receive Date: 20110524
  Receipt Date: 20110509
  Transmission Date: 20111010
  Serious: Yes (Other)
  Sender: FDA-Public Use
  Company Number: AUR-APL-2011-01661

PATIENT
  Age: 51 Year
  Sex: Female
  Weight: 82.09 kg

DRUGS (10)
  1. LIPITOR [Suspect]
     Indication: BLOOD CHOLESTEROL INCREASED
     Dosage: 40MG DAILY, ORAL
     Route: 048
     Dates: start: 20110401
  2. LIPITOR [Suspect]
     Indication: HYPERTENSION
     Dosage: 40MG DAILY, ORAL
     Route: 048
     Dates: start: 20110401
  3. SIMVASTATIN [Suspect]
     Indication: HYPERTENSION
     Dosage: 40 MG, DAILY, ORAL
     Route: 048
     Dates: start: 20110301, end: 20110301
  4. SIMVASTATIN [Suspect]
     Indication: BLOOD CHOLESTEROL INCREASED
     Dosage: 40 MG, DAILY, ORAL
     Route: 048
     Dates: start: 20110301, end: 20110301
  5. SIMVASTATIN [Suspect]
     Indication: HYPERTENSION
     Dosage: 40 MG, DAILY, ORAL
     Route: 048
     Dates: end: 20110401
  6. SIMVASTATIN [Suspect]
     Indication: BLOOD CHOLESTEROL INCREASED
     Dosage: 40 MG, DAILY, ORAL
     Route: 048
     Dates: end: 20110401
  7. ATORVASTATIN CALCIUM [Suspect]
     Indication: BLOOD CHOLESTEROL INCREASED
     Dosage: 40MG, DAILY, ORAL
     Route: 048
     Dates: start: 20110301
  8. ATORVASTATIN CALCIUM [Suspect]
     Indication: HYPERTENSION
     Dosage: 40MG, DAILY, ORAL
     Route: 048
     Dates: start: 20110301
  9. ATORVASTATIN CALCIUM [Suspect]
     Indication: BLOOD CHOLESTEROL INCREASED
     Dosage: 40MG, DAILY, ORAL
     Route: 048
     Dates: start: 20110201, end: 20110301
  10. ATORVASTATIN CALCIUM [Suspect]
     Indication: HYPERTENSION
     Dosage: 40MG, DAILY, ORAL
     Route: 048
     Dates: start: 20110201, end: 20110301

REACTIONS (5)
  - DIARRHOEA [None]
  - MALAISE [None]
  - ABDOMINAL PAIN UPPER [None]
  - ASTHENIA [None]
  - BLOOD CHOLESTEROL INCREASED [None]
